FAERS Safety Report 5429388-X (Version None)
Quarter: 2007Q3

REPORT INFORMATION
  Report Type: 
  Country: None (occurrence: None)
  Receive Date: 20070731
  Receipt Date: 20070503
  Transmission Date: 20080115
  Serious: No
  Sender: FDA-Public Use
  Company Number: US200705001207

PATIENT
  Age: 92 Year
  Sex: Female
  Weight: 142.9 kg

DRUGS (4)
  1. BYETTA [Suspect]
     Indication: DIABETES MELLITUS
     Dosage: 5 UG, 2/D, SUBCUTANEOUS   10 UG, 2/D, SUBCUTANEOUS
     Route: 058
     Dates: start: 20070317, end: 20070416
  2. BYETTA [Suspect]
     Indication: DIABETES MELLITUS
     Dosage: 5 UG, 2/D, SUBCUTANEOUS   10 UG, 2/D, SUBCUTANEOUS
     Route: 058
     Dates: start: 20070417
  3. HUMULIN (INSULIN HUMAN) [Concomitant]
  4. INSULIN (INSULIN) [Concomitant]

REACTIONS (3)
  - NAUSEA [None]
  - PRURITUS [None]
  - WEIGHT FLUCTUATION [None]
